FAERS Safety Report 25578361 (Version 2)
Quarter: 2025Q3

REPORT INFORMATION
  Report Type: Report from Study
  Country: EU (occurrence: EU)
  Receive Date: 20250718
  Receipt Date: 20250829
  Transmission Date: 20251021
  Serious: Yes (Other)
  Sender: DECIPHERA PHARMACEUTICALS
  Company Number: EU-DECIPHERA PHARMACEUTICALS LLC-2025DE000857

PATIENT
  Age: 24 Year
  Sex: Female
  Weight: 82 kg

DRUGS (3)
  1. VIMSELTINIB [Suspect]
     Active Substance: VIMSELTINIB
     Indication: Giant cell tumour of tendon sheath
     Dosage: 30 MILLIGRAM, TWICE WEEKLY
     Route: 048
     Dates: start: 20250515, end: 202506
  2. VIMSELTINIB [Suspect]
     Active Substance: VIMSELTINIB
     Dosage: 20 MILLIGRAM, TWICE WEEKLY
     Route: 048
     Dates: start: 20250620, end: 20250708
  3. VIMSELTINIB [Suspect]
     Active Substance: VIMSELTINIB
     Dosage: 30 MILLIGRAM, TWICE WEEKLY
     Route: 048
     Dates: start: 202507

REACTIONS (2)
  - Hepatotoxicity [Recovered/Resolved]
  - Pain [Recovered/Resolved]

NARRATIVE: CASE EVENT DATE: 20250620
